FAERS Safety Report 25149512 (Version 2)
Quarter: 2025Q2

REPORT INFORMATION
  Report Type: Report from Study
  Country: US (occurrence: US)
  Receive Date: 20250402
  Receipt Date: 20250430
  Transmission Date: 20250716
  Serious: Yes (Other)
  Sender: GILEAD
  Company Number: US-GILEAD-2025-0709064

PATIENT
  Sex: Male

DRUGS (5)
  1. AZTREONAM LYSINE [Suspect]
     Active Substance: AZTREONAM LYSINE
     Indication: Cystic fibrosis
     Dosage: 75 MG, TID (INHALE 75MG THREE TIMES A DAY X 30 DAYS VIA NEBULATION; USE WITH ALTERA NEBULIZER SYSTEM
     Route: 055
  2. TRIKAFTA [Concomitant]
     Active Substance: ELEXACAFTOR\IVACAFTOR\TEZACAFTOR
     Route: 065
  3. PULMOZYME [Concomitant]
     Active Substance: DORNASE ALFA
  4. OXYMETAZOLINE HYDROCHLORIDE [Concomitant]
     Active Substance: OXYMETAZOLINE HYDROCHLORIDE
  5. SINGULAIR [Concomitant]
     Active Substance: MONTELUKAST SODIUM

REACTIONS (9)
  - Autism spectrum disorder [Unknown]
  - Seizure [Unknown]
  - Sinusitis [Unknown]
  - Tremor [Recovering/Resolving]
  - Surgery [Unknown]
  - Speech disorder [Unknown]
  - Attention deficit hyperactivity disorder [Unknown]
  - Tic [Unknown]
  - Hypersensitivity [Unknown]
